FAERS Safety Report 16127821 (Version 2)
Quarter: 2019Q1

REPORT INFORMATION
  Report Type: Report from Study
  Country: US (occurrence: US)
  Receive Date: 20190328
  Receipt Date: 20190329
  Transmission Date: 20190418
  Serious: Yes (Other)
  Sender: FDA-Public Use
  Company Number: PHHY2018US201262

PATIENT
  Age: 14 Year
  Sex: Male

DRUGS (1)
  1. KYMRIAH [Suspect]
     Active Substance: TISAGENLECLEUCEL
     Indication: B-CELL TYPE ACUTE LEUKAEMIA
     Dosage: ONCE/SINGLE
     Route: 041
     Dates: start: 2018

REACTIONS (17)
  - Pyrexia [Unknown]
  - Influenza [Unknown]
  - Neurotoxicity [Recovered/Resolved]
  - Depressed level of consciousness [Unknown]
  - Hypogammaglobulinaemia [Unknown]
  - Platelet count decreased [Recovered/Resolved]
  - Cytokine release syndrome [Recovered/Resolved]
  - Hypotension [Unknown]
  - Cytokine release syndrome [Unknown]
  - Cellulitis [Unknown]
  - Viral upper respiratory tract infection [Unknown]
  - Viral sinusitis [Unknown]
  - Neutrophil count decreased [Recovered/Resolved]
  - Corynebacterium infection [Unknown]
  - Staphylococcal infection [Unknown]
  - Infection [Unknown]
  - Rhinovirus infection [Unknown]
